FAERS Safety Report 9253221 (Version 1)
Quarter: 2013Q2

REPORT INFORMATION
  Report Type: Spontaneous
  Country: UA (occurrence: UA)
  Receive Date: 20130424
  Receipt Date: 20130424
  Transmission Date: 20140414
  Serious: Yes (Other)
  Sender: FDA-Public Use
  Company Number: UA-009507513-1304UKR013420

PATIENT
  Age: 20 Year
  Sex: Female

DRUGS (3)
  1. ETORICOXIB [Suspect]
     Indication: PAIN
     Dosage: UNK
     Route: 048
     Dates: start: 2013, end: 2013
  2. LINCOMYCIN [Suspect]
     Dosage: UNK
     Dates: start: 2013, end: 2013
  3. CLARITINE [Suspect]
     Dosage: UNK
     Route: 048
     Dates: start: 2013, end: 2013

REACTIONS (4)
  - Loss of consciousness [Recovered/Resolved]
  - Tachycardia [Recovered/Resolved]
  - Tachycardia [Recovered/Resolved]
  - Pyrexia [Recovered/Resolved]
